FAERS Safety Report 5535827-6 (Version None)
Quarter: 2007Q4

REPORT INFORMATION
  Report Type: 
  Country: None (occurrence: None)
  Receive Date: 20071206
  Receipt Date: 20071128
  Transmission Date: 20080405
  Serious: Yes (Other)
  Sender: FDA-Public Use
  Company Number: B0497471A

PATIENT
  Age: 50 Year
  Sex: Male

DRUGS (2)
  1. AVODART [Suspect]
     Dosage: .5MG PER DAY
     Route: 048
     Dates: start: 20050101
  2. XATRAL [Concomitant]

REACTIONS (3)
  - INFERTILITY MALE [None]
  - LIBIDO DECREASED [None]
  - SPERMATOZOA ABNORMAL [None]
